FAERS Safety Report 12112902 (Version 1)
Quarter: 2016Q1

REPORT INFORMATION
  Report Type: Other
  Country: US (occurrence: US)
  Receive Date: 20160225
  Receipt Date: 20160225
  Transmission Date: 20160526
  Serious: No
  Sender: FDA-Public Use
  Company Number: US-ACORDA-ACO_116445_2015

PATIENT
  Age: 34 Year
  Sex: Female

DRUGS (1)
  1. AMPYRA [Suspect]
     Active Substance: DALFAMPRIDINE
     Indication: PRODUCT USED FOR UNKNOWN INDICATION
     Dosage: 10 MG, Q 12 HRS
     Route: 048

REACTIONS (6)
  - Neuropathy peripheral [Unknown]
  - Therapeutic response unexpected [Unknown]
  - Muscle tightness [Unknown]
  - Psychomotor hyperactivity [Unknown]
  - Muscle spasms [Unknown]
  - Constipation [Unknown]
